FAERS Safety Report 19738559 (Version 1)
Quarter: 2021Q3

REPORT INFORMATION
  Report Type: Spontaneous
  Country: US (occurrence: US)
  Receive Date: 20210820
  Receipt Date: 20210820
  Transmission Date: 20211014
  Serious: Yes (Hospitalization)
  Sender: FDA-Public Use
  Company Number: None

PATIENT
  Age: 58 Year
  Sex: Female
  Weight: 66.8 kg

DRUGS (3)
  1. DURVALUMAB (MED14736) [Suspect]
     Active Substance: DURVALUMAB
     Indication: PRODUCT USED FOR UNKNOWN INDICATION
     Dates: end: 20210615
  2. CARBOPLATIN. [Suspect]
     Active Substance: CARBOPLATIN
     Dates: end: 20210329
  3. TAXOL [Suspect]
     Active Substance: PACLITAXEL
     Dates: end: 20210329

REACTIONS (24)
  - Procedural failure [None]
  - Heart rate increased [None]
  - Disease progression [None]
  - Dysphagia [None]
  - Oesophageal infection [None]
  - Nausea [None]
  - Inadequate analgesia [None]
  - Procedural complication [None]
  - Odynophagia [None]
  - Regurgitation [None]
  - Weight decreased [None]
  - Hypomagnesaemia [None]
  - Colitis [None]
  - Oesophagitis [None]
  - Vomiting [None]
  - Diarrhoea [None]
  - Drug ineffective [None]
  - Hypokalaemia [None]
  - Oesophageal rupture [None]
  - Aphasia [None]
  - Radiation injury [None]
  - Oesophageal ulcer [None]
  - Oesophageal stenosis [None]
  - Dehydration [None]

NARRATIVE: CASE EVENT DATE: 20210602
